FAERS Safety Report 6575693-3 (Version None)
Quarter: 2010Q1

REPORT INFORMATION
  Report Type: 
  Country: None (occurrence: None)
  Receive Date: 20100209
  Receipt Date: 20100202
  Transmission Date: 20100710
  Serious: Yes (Death, Life-Threatening, Hospitalization, Disabling, Other)
  Sender: FDA-Public Use
  Company Number: JP-BRISTOL-MYERS SQUIBB COMPANY-14706568

PATIENT
  Age: 25 Year
  Sex: Male
  Weight: 57 kg

DRUGS (16)
  1. SPRYCEL [Suspect]
     Indication: ACUTE LYMPHOCYTIC LEUKAEMIA
     Route: 048
     Dates: start: 20090416, end: 20090708
  2. MAXIPIME [Suspect]
     Route: 042
     Dates: start: 20090424, end: 20090427
  3. FAROM [Suspect]
     Route: 048
     Dates: start: 20090428, end: 20090501
  4. PREDNISOLONE [Concomitant]
     Indication: ACUTE LYMPHOCYTIC LEUKAEMIA
     Dosage: FORM:TABS
     Route: 048
     Dates: end: 20090710
  5. ITRACONAZOLE [Concomitant]
     Indication: PROPHYLAXIS
     Dosage: CAPSULE;400-200MG/DAY(06JUL-16JUL09)INJ.
     Route: 048
     Dates: end: 20090705
  6. CYCLOSPORINE [Concomitant]
     Indication: PROPHYLAXIS
     Dosage: 09JUL-16JUL09.
     Route: 048
     Dates: end: 20090708
  7. SULFAMETHOXAZOLE AND TRIMETHOPRIM [Concomitant]
     Indication: ANTIBIOTIC PROPHYLAXIS
     Dosage: 1DF=1TAB;800MG/DAY(02JUL-18JUL09)INJ.
     Route: 048
     Dates: start: 20090414, end: 20090702
  8. GANCICLOVIR [Concomitant]
     Dosage: FORM:INJ;50MG(18JUL09-28JUL09).
     Route: 042
     Dates: start: 20090630, end: 20090709
  9. CEFTAZIDIME [Concomitant]
     Dosage: FORM:INJ
     Route: 042
     Dates: start: 20090630, end: 20090710
  10. FOSCARNET SODIUM [Concomitant]
     Dosage: FORM:INJ
     Route: 041
     Dates: start: 20090710, end: 20090716
  11. BIAPENEM [Concomitant]
     Dosage: FORM:INJ
     Dates: start: 20090710, end: 20090716
  12. METHYLPREDNISOLONE SODIUM SUCCINATE [Concomitant]
     Indication: ACUTE LYMPHOCYTIC LEUKAEMIA
     Dosage: FORM:INJ
     Route: 042
     Dates: start: 20090711, end: 20090728
  13. AMPHOTERICIN B [Concomitant]
     Dosage: FORM:INJ
     Route: 042
     Dates: start: 20090718, end: 20090728
  14. PIPERACILLIN AND TAZOBACTAM [Concomitant]
     Route: 042
     Dates: start: 20090720, end: 20090724
  15. MEROPENEM [Concomitant]
     Dosage: FORM:INJ
     Route: 042
     Dates: start: 20090725, end: 20090728
  16. PENTAMIDINE ISETHIONATE [Concomitant]
     Dosage: FORM:INJ
     Route: 042
     Dates: start: 20090718, end: 20090728

REACTIONS (23)
  - ANAEMIA [None]
  - BRONCHOPULMONARY ASPERGILLOSIS [None]
  - ENTEROCOLITIS [None]
  - EYELID OEDEMA [None]
  - GASTROINTESTINAL HAEMORRHAGE [None]
  - GENERALISED OEDEMA [None]
  - GRAFT VERSUS HOST DISEASE [None]
  - HEADACHE [None]
  - HEPATITIS FULMINANT [None]
  - INTERSTITIAL LUNG DISEASE [None]
  - LIVER DISORDER [None]
  - LIVER FUNCTION TEST ABNORMAL [None]
  - NEUTROPHIL COUNT DECREASED [None]
  - ORAL HERPES [None]
  - PERICARDIAL EFFUSION [None]
  - PLATELET COUNT DECREASED [None]
  - PLEURAL EFFUSION [None]
  - PNEUMOCYSTIS JIROVECI PNEUMONIA [None]
  - PNEUMONIA CYTOMEGALOVIRAL [None]
  - PNEUMONIA VIRAL [None]
  - PULMONARY HAEMORRHAGE [None]
  - RENAL IMPAIRMENT [None]
  - WHITE BLOOD CELL COUNT DECREASED [None]
